FAERS Safety Report 22945852 (Version 2)
Quarter: 2023Q4

REPORT INFORMATION
  Report Type: Spontaneous
  Country: US (occurrence: US)
  Receive Date: 20230914
  Receipt Date: 20231221
  Transmission Date: 20240110
  Serious: Yes (Death, Other)
  Sender: FDA-Public Use
  Company Number: US-JNJFOC-20230928022

PATIENT
  Age: 51 Year
  Sex: Male

DRUGS (3)
  1. TECVAYLI [Suspect]
     Active Substance: TECLISTAMAB-CQYV
     Indication: Plasma cell myeloma refractory
     Dosage: STEP UP DOSE 1
     Route: 058
     Dates: start: 20230723, end: 20230723
  2. TECVAYLI [Suspect]
     Active Substance: TECLISTAMAB-CQYV
     Dosage: STEP UP DOSE 2
     Route: 058
     Dates: start: 20230728, end: 20230728
  3. TECVAYLI [Suspect]
     Active Substance: TECLISTAMAB-CQYV
     Dosage: FIRST TREATMENT DOSE
     Route: 058
     Dates: start: 20230730

REACTIONS (2)
  - Cardiac arrest [Fatal]
  - Melaena [Unknown]

NARRATIVE: CASE EVENT DATE: 20230701
